FAERS Safety Report 8440456-0 (Version None)
Quarter: 2012Q2

REPORT INFORMATION
  Report Type: 
  Country: None (occurrence: None)
  Receive Date: 20120615
  Receipt Date: 20120612
  Transmission Date: 20120825
  Serious: Yes (Hospitalization)
  Sender: FDA-Public Use
  Company Number: US-GLAXOSMITHKLINE-A0966792A

PATIENT
  Age: 39 Year
  Sex: Female
  Weight: 55 kg

DRUGS (10)
  1. MYCOPHENOLATE MOFETIL [Concomitant]
  2. IBUPROFEN [Concomitant]
  3. LISINOPRIL [Concomitant]
  4. DIGOXIN [Concomitant]
  5. PREDNISONE TAB [Concomitant]
  6. FLOLAN [Suspect]
     Indication: CONNECTIVE TISSUE DISORDER
     Dosage: 21NGKM SEE DOSAGE TEXT
     Route: 042
     Dates: start: 20100825
  7. POTASSIUM ACETATE [Concomitant]
  8. REVATIO [Concomitant]
     Dosage: 40MG THREE TIMES PER DAY
  9. DILAUDID [Concomitant]
  10. LASIX [Concomitant]

REACTIONS (7)
  - DEHYDRATION [None]
  - VOMITING [None]
  - BLOOD PRESSURE DECREASED [None]
  - WEIGHT DECREASED [None]
  - BASEDOW'S DISEASE [None]
  - NUCLEAR MAGNETIC RESONANCE IMAGING [None]
  - SYNCOPE [None]
